FAERS Safety Report 18079236 (Version 2)
Quarter: 2020Q3

REPORT INFORMATION
  Report Type: Spontaneous
  Country: NL (occurrence: NL)
  Receive Date: 20200728
  Receipt Date: 20200814
  Transmission Date: 20201103
  Serious: Yes (Hospitalization, Other)
  Sender: FDA-Public Use
  Company Number: NL-ACCORD-192342

PATIENT
  Age: 73 Year
  Sex: Male

DRUGS (2)
  1. METHOTREXATE. [Suspect]
     Active Substance: METHOTREXATE
     Indication: EPIDERMAL NECROSIS
  2. PREDNISONE. [Suspect]
     Active Substance: PREDNISONE
     Indication: EPIDERMAL NECROSIS

REACTIONS (2)
  - Pleomorphic malignant fibrous histiocytoma [Unknown]
  - Off label use [Unknown]
